FAERS Safety Report 14563602 (Version 1)
Quarter: 2018Q1

REPORT INFORMATION
  Report Type: Spontaneous
  Country: US (occurrence: US)
  Receive Date: 20180222
  Receipt Date: 20180222
  Transmission Date: 20180509
  Serious: No
  Sender: FDA-Public Use
  Company Number: US-TEVA-2018-US-859878

PATIENT
  Sex: Male

DRUGS (1)
  1. AIRDUO RESPICLICK [Suspect]
     Active Substance: FLUTICASONE PROPIONATE\SALMETEROL XINAFOATE
     Dosage: 1 DF:  232MCG OF FLUTICASONE PROPIONATE /14 MCG OF SALMETEROL
     Route: 065

REACTIONS (2)
  - Bronchitis [Unknown]
  - Drug dose omission [Unknown]
